FAERS Safety Report 8916116 (Version 2)
Quarter: 2013Q1

REPORT INFORMATION
  Report Type: Spontaneous
  Country: IT (occurrence: IT)
  Receive Date: 20121120
  Receipt Date: 20130211
  Transmission Date: 20140127
  Serious: Yes (Other)
  Sender: FDA-Public Use
  Company Number: IT-ELI_LILLY_AND_COMPANY-IT201211004738

PATIENT
  Age: 54 Year
  Sex: Male

DRUGS (6)
  1. ALIMTA [Suspect]
     Indication: LUNG ADENOCARCINOMA
     Dosage: 725 MG, PER CYCLE
     Route: 042
     Dates: start: 20121019
  2. ONDANSETRON [Concomitant]
     Indication: PROPHYLAXIS OF NAUSEA AND VOMITING
     Dosage: 8 MG, UNK
     Route: 042
     Dates: start: 20121019, end: 20121019
  3. RANITIDINE [Concomitant]
     Indication: LUNG ADENOCARCINOMA
     Dosage: 50 MG, UNK
     Route: 042
     Dates: start: 20121019, end: 20121019
  4. SOLDESAM [Concomitant]
     Indication: LUNG ADENOCARCINOMA
     Dosage: 8 MG, UNK
     Route: 042
     Dates: start: 20121019, end: 20121019
  5. FOLIC ACID [Concomitant]
  6. CYANOCOBALAMIN [Concomitant]
     Dosage: 1000 DF, UNK

REACTIONS (5)
  - Swelling face [Recovering/Resolving]
  - Vertigo [Recovering/Resolving]
  - Local swelling [Recovering/Resolving]
  - Stomatitis [Recovering/Resolving]
  - Paraesthesia [Unknown]
